FAERS Safety Report 6807037-3 (Version None)
Quarter: 2010Q2

REPORT INFORMATION
  Report Type: 
  Country: None (occurrence: None)
  Receive Date: 20100629
  Receipt Date: 20080708
  Transmission Date: 20101027
  Serious: No
  Sender: FDA-Public Use
  Company Number: US-PFIZER INC-2008057607

PATIENT
  Sex: Male
  Weight: 88 kg

DRUGS (8)
  1. TIKOSYN [Suspect]
     Indication: ARRHYTHMIA
     Dates: start: 20080420
  2. COREG [Concomitant]
  3. LEVOXYL [Concomitant]
  4. DIGITEK [Concomitant]
  5. ALDACTONE [Concomitant]
  6. ZESTRIL [Concomitant]
  7. TERAZOSIN HCL [Concomitant]
  8. ZOCOR [Concomitant]

REACTIONS (1)
  - TERMINAL INSOMNIA [None]
